FAERS Safety Report 6774060-7 (Version None)
Quarter: 2010Q2

REPORT INFORMATION
  Report Type: 
  Country: None (occurrence: None)
  Receive Date: 20100617
  Receipt Date: 20100608
  Transmission Date: 20101027
  Serious: Yes (Hospitalization, Other)
  Sender: FDA-Public Use
  Company Number: PHHY2009HU28715

PATIENT
  Age: 54 Year
  Sex: Female

DRUGS (3)
  1. ACLASTA [Suspect]
     Indication: OSTEOPOROSIS
     Dosage: 5 MG/100 ML
  2. COAPROVEL [Concomitant]
     Dosage: UNK
  3. NEBIVOLOL HCL [Concomitant]

REACTIONS (7)
  - BACK PAIN [None]
  - BONE DENSITY DECREASED [None]
  - BONE PAIN [None]
  - MUSCLE SPASMS [None]
  - SCOLIOSIS [None]
  - SPINAL COMPRESSION FRACTURE [None]
  - SPINAL DEFORMITY [None]
